FAERS Safety Report 19215428 (Version 2)
Quarter: 2022Q3

REPORT INFORMATION
  Report Type: Report from Study
  Country: ES (occurrence: ES)
  Receive Date: 20210504
  Receipt Date: 20220718
  Transmission Date: 20221027
  Serious: Yes (Hospitalization, Other)
  Sender: FDA-Public Use
  Company Number: ES-BRISTOL-MYERS SQUIBB COMPANY-BMS-2018-120573

PATIENT
  Age: 64 Year
  Sex: Female
  Weight: 57.3 kg

DRUGS (10)
  1. NIVOLUMAB [Suspect]
     Active Substance: NIVOLUMAB
     Indication: Colorectal cancer
     Route: 042
     Dates: start: 20181002, end: 20181203
  2. BINIMETINIB [Suspect]
     Active Substance: BINIMETINIB
     Indication: Colorectal cancer
     Dosage: 45 MILLIGRAM, QD
     Route: 048
     Dates: start: 20181002, end: 20181203
  3. ACETA [PARACETAMOL] [Concomitant]
     Indication: Pelvic pain
     Dosage: 1 GRAM, 3 PER DAY (EACH 8 HOURS)
     Route: 048
     Dates: start: 20181016
  4. ACETA [PARACETAMOL] [Concomitant]
     Route: 048
     Dates: start: 20181016
  5. ACETA [PARACETAMOL] [Concomitant]
     Route: 048
     Dates: start: 20181016
  6. DEXKETOPROFEN [Concomitant]
     Active Substance: DEXKETOPROFEN
     Indication: Pelvic pain
     Dosage: 25 MILLIGRAM, 3 PER DAY (EACH 8 HOURS)
     Route: 048
     Dates: start: 20181016
  7. EMULIQUEN LAXANTE [PARAFFIN;SODIUM PICOSULFATE] [Concomitant]
     Indication: Constipation
     Dosage: 2 SPOONS, BID
     Route: 048
     Dates: start: 20181016
  8. ERYTHROMYCIN [Concomitant]
     Active Substance: ERYTHROMYCIN
     Indication: Dermatitis acneiform
     Dosage: 1 APPLICATION QD
     Route: 061
     Dates: start: 20181105
  9. MORPHINE SULFATE [Concomitant]
     Active Substance: MORPHINE SULFATE
     Indication: Pain prophylaxis
     Dosage: 10 MILLIGRAM, BID
     Route: 048
     Dates: start: 20181031, end: 20181202
  10. MORPHINE SULFATE [Concomitant]
     Active Substance: MORPHINE SULFATE
     Dosage: 20 MILLIGRAM, BID
     Route: 048
     Dates: start: 20181203

REACTIONS (1)
  - Cardiac failure [Recovered/Resolved]

NARRATIVE: CASE EVENT DATE: 20181212
